FAERS Safety Report 12010598 (Version 3)
Quarter: 2019Q1

REPORT INFORMATION
  Report Type: Spontaneous
  Country: US (occurrence: US)
  Receive Date: 20160205
  Receipt Date: 20190214
  Transmission Date: 20190417
  Serious: Yes (Hospitalization, Other)
  Sender: FDA-Public Use
  Company Number: US-ASTRAZENECA-2016SE10400

PATIENT
  Sex: Female
  Weight: 59 kg

DRUGS (11)
  1. BRILINTA [Suspect]
     Active Substance: TICAGRELOR
     Indication: ACUTE CORONARY SYNDROME
     Route: 048
  2. METOPROLOL TARTRATE. [Suspect]
     Active Substance: METOPROLOL TARTRATE
     Indication: BLOOD PRESSURE ABNORMAL
     Route: 048
  3. BRILINTA [Suspect]
     Active Substance: TICAGRELOR
     Indication: ANTICOAGULANT THERAPY
     Route: 048
  4. BRILINTA [Suspect]
     Active Substance: TICAGRELOR
     Indication: CORONARY ARTERY OCCLUSION
     Route: 048
  5. BRILINTA [Suspect]
     Active Substance: TICAGRELOR
     Indication: MYOCARDIAL INFARCTION
     Route: 048
  6. BRILINTA [Suspect]
     Active Substance: TICAGRELOR
     Indication: STENT PLACEMENT
     Route: 048
  7. ASPIRIN. [Suspect]
     Active Substance: ASPIRIN
     Route: 048
  8. GAVISCON [Concomitant]
     Active Substance: ALUMINUM HYDROXIDE\MAGNESIUM CARBONATE
     Indication: GASTROOESOPHAGEAL REFLUX DISEASE
  9. ISOSORBIDE MONONITRATE. [Suspect]
     Active Substance: ISOSORBIDE MONONITRATE
     Indication: CARDIOSPASM
     Dosage: DECREASED FROM TWICE A DAY TO ONCE A DAY
     Route: 048
  10. ROSUVASTATIN. [Suspect]
     Active Substance: ROSUVASTATIN
     Indication: BLOOD CHOLESTEROL INCREASED
     Route: 048
  11. OMEGA Q PLUS WITH CO Q 10 AND RESVERATROL [Concomitant]
     Indication: CARDIAC DISORDER
     Route: 048

REACTIONS (26)
  - Malaise [Unknown]
  - Arrhythmia [Unknown]
  - Haemorrhage [Unknown]
  - Fatigue [Unknown]
  - Chest pain [Recovering/Resolving]
  - Tremor [Not Recovered/Not Resolved]
  - Feeling of body temperature change [Unknown]
  - Cardiac disorder [Unknown]
  - Head injury [Unknown]
  - Arteriospasm coronary [Recovering/Resolving]
  - Neuropathy peripheral [Not Recovered/Not Resolved]
  - Asthenia [Not Recovered/Not Resolved]
  - Balance disorder [Not Recovered/Not Resolved]
  - Gastrooesophageal reflux disease [Unknown]
  - Reflux gastritis [Recovering/Resolving]
  - Macular degeneration [Not Recovered/Not Resolved]
  - Fall [Not Recovered/Not Resolved]
  - Gastrointestinal polyp [Unknown]
  - Memory impairment [Unknown]
  - Cataract [Not Recovered/Not Resolved]
  - Body height decreased [Not Recovered/Not Resolved]
  - Haematoma [Unknown]
  - Pain [Unknown]
  - Anxiety [Unknown]
  - Gastritis [Unknown]
  - Gait disturbance [Not Recovered/Not Resolved]
